FAERS Safety Report 10664603 (Version 2)
Quarter: 2014Q4

REPORT INFORMATION
  Report Type: Spontaneous
  Country: FR (occurrence: FR)
  Receive Date: 20141219
  Receipt Date: 20141224
  Transmission Date: 20150529
  Serious: Yes (Hospitalization)
  Sender: FDA-Public Use
  Company Number: FR-PFIZER INC-2014345488

PATIENT
  Age: 12 Year
  Sex: Female

DRUGS (2)
  1. MORPHINE SULFATE. [Suspect]
     Active Substance: MORPHINE SULFATE
     Indication: HAND FRACTURE
     Dosage: UNK
     Dates: start: 20130723
  2. MORPHINE SULFATE. [Suspect]
     Active Substance: MORPHINE SULFATE
     Indication: JOINT DISLOCATION

REACTIONS (1)
  - Pancreatitis acute [Recovering/Resolving]
